FAERS Safety Report 25887256 (Version 1)
Quarter: 2025Q4

REPORT INFORMATION
  Report Type: Spontaneous
  Country: US (occurrence: US)
  Receive Date: 20251006
  Receipt Date: 20251006
  Transmission Date: 20260118
  Serious: Yes (Other)
  Sender: SANOFI AVENTIS
  Company Number: US-SA-2025SA295863

PATIENT
  Age: 63 Year
  Sex: Female
  Weight: 68.934 kg

DRUGS (2)
  1. DUPIXENT [Suspect]
     Active Substance: DUPILUMAB
     Indication: Neurodermatitis
     Dosage: 1 DF, QOW
     Route: 058
  2. NEMOLIZUMAB ILTO [Concomitant]

REACTIONS (1)
  - Neoplasm malignant [Not Recovered/Not Resolved]
